FAERS Safety Report 19871455 (Version 1)
Quarter: 2021Q3

REPORT INFORMATION
  Report Type: Spontaneous
  Country: US (occurrence: US)
  Receive Date: 20210922
  Receipt Date: 20210922
  Transmission Date: 20211014
  Serious: Yes (Death)
  Sender: FDA-Public Use
  Company Number: None

PATIENT
  Sex: Female

DRUGS (13)
  1. FOLIC ACID. [Concomitant]
     Active Substance: FOLIC ACID
  2. LOSARTAN POT [Concomitant]
     Active Substance: LOSARTAN POTASSIUM
  3. ONDANSETRON [Concomitant]
     Active Substance: ONDANSETRON
  4. LETROZOLE. [Concomitant]
     Active Substance: LETROZOLE
  5. PROZAC [Concomitant]
     Active Substance: FLUOXETINE HYDROCHLORIDE
  6. VITAMIN D3 [Concomitant]
     Active Substance: CHOLECALCIFEROL
  7. ASPIRIN. [Concomitant]
     Active Substance: ASPIRIN
  8. OXYCODONE [Concomitant]
     Active Substance: OXYCODONE
  9. PROCHLORPER [Concomitant]
  10. VERZENIO [Suspect]
     Active Substance: ABEMACICLIB
     Indication: MALIGNANT NIPPLE NEOPLASM FEMALE
     Route: 048
     Dates: start: 20210831
  11. LEVOTHYROXINE. [Concomitant]
     Active Substance: LEVOTHYROXINE
  12. MULTI?VIT [Concomitant]
     Active Substance: VITAMINS
  13. VIT B 12 /FA [Concomitant]

REACTIONS (1)
  - Death [None]
